FAERS Safety Report 9038760 (Version 1)
Quarter: 2013Q1

REPORT INFORMATION
  Report Type: Spontaneous
  Country: US (occurrence: None)
  Receive Date: 20130123
  Receipt Date: 20130123
  Transmission Date: 20140127
  Serious: Yes (Other)
  Sender: FDA-Public Use
  Company Number: None

PATIENT
  Age: 36 Year
  Sex: Female
  Weight: 120.2 kg

DRUGS (1)
  1. ITRACONAZOLE 100MG MYLAN [Suspect]
     Indication: ANTIFUNGAL TREATMENT
     Route: 048
     Dates: start: 20130117, end: 20130120

REACTIONS (4)
  - Abdominal pain upper [None]
  - Dizziness [None]
  - Gastroenteritis [None]
  - Dysstasia [None]
